FAERS Safety Report 26106350 (Version 1)
Quarter: 2025Q4

REPORT INFORMATION
  Report Type: Spontaneous
  Country: EU (occurrence: EU)
  Receive Date: 20251201
  Receipt Date: 20251201
  Transmission Date: 20260118
  Serious: Yes (Other)
  Sender: KYOWA
  Company Number: EU-KYOWAKIRIN-2025KK022911

PATIENT

DRUGS (1)
  1. POTELIGEO [Suspect]
     Active Substance: MOGAMULIZUMAB-KPKC
     Indication: Product used for unknown indication
     Dosage: UNK
     Route: 065

REACTIONS (3)
  - Nocardiosis [Unknown]
  - Cytomegalovirus oesophagitis [Unknown]
  - Herpes simplex [Unknown]
